FAERS Safety Report 21908423 (Version 2)
Quarter: 2023Q1

REPORT INFORMATION
  Report Type: Spontaneous
  Country: DE (occurrence: DE)
  Receive Date: 20230125
  Receipt Date: 20230228
  Transmission Date: 20230418
  Serious: Yes (Death)
  Sender: FDA-Public Use
  Company Number: DE-JNJFOC-20230144872

PATIENT
  Age: 68 Year
  Sex: Male
  Weight: 190 kg

DRUGS (2)
  1. STELARA [Suspect]
     Active Substance: USTEKINUMAB
     Indication: Crohn^s disease
     Dosage: INITIAL ADMINISTRATION, 4 X 130 MG
     Route: 040
     Dates: start: 20220328, end: 20220328
  2. BUDESONIDE [Concomitant]
     Active Substance: BUDESONIDE
     Dates: start: 201908

REACTIONS (2)
  - Urosepsis [Fatal]
  - Pyrexia [Unknown]

NARRATIVE: CASE EVENT DATE: 20220329
